FAERS Safety Report 14036607 (Version 1)
Quarter: 2017Q4

REPORT INFORMATION
  Report Type: Spontaneous
  Country: US (occurrence: US)
  Receive Date: 20171003
  Receipt Date: 20171003
  Transmission Date: 20180321
  Serious: No
  Sender: FDA-Public Use
  Company Number: US-ROCHE-1913762

PATIENT
  Age: 58 Year
  Sex: Female

DRUGS (1)
  1. COTELLIC [Suspect]
     Active Substance: COBIMETINIB
     Indication: PRODUCT USED FOR UNKNOWN INDICATION
     Dosage: 20MG TABLET(TAKE 3 TABLETS=60MG)
     Route: 048

REACTIONS (2)
  - Neuropathy peripheral [Unknown]
  - Dry skin [Unknown]
